FAERS Safety Report 21728463 (Version 4)
Quarter: 2023Q1

REPORT INFORMATION
  Report Type: Report from Study
  Country: MX (occurrence: MX)
  Receive Date: 20221214
  Receipt Date: 20230309
  Transmission Date: 20230418
  Serious: Yes (Hospitalization, Other)
  Sender: FDA-Public Use
  Company Number: MX-002147023-NVSC2022MX289074

PATIENT
  Sex: Female

DRUGS (1)
  1. TASIGNA [Suspect]
     Active Substance: NILOTINIB
     Indication: Chronic myeloid leukaemia
     Dosage: UNK
     Route: 048

REACTIONS (9)
  - Infarction [Unknown]
  - Decreased interest [Unknown]
  - Feeling abnormal [Unknown]
  - Fear [Unknown]
  - Influenza [Unknown]
  - Aphonia [Not Recovered/Not Resolved]
  - Blood cholesterol decreased [Unknown]
  - Dyspnoea [Recovering/Resolving]
  - Fatigue [Unknown]
